FAERS Safety Report 6871980-X (Version None)
Quarter: 2010Q3

REPORT INFORMATION
  Report Type: 
  Country: None (occurrence: None)
  Receive Date: 20100723
  Receipt Date: 20100622
  Transmission Date: 20110219
  Serious: Yes (Other)
  Sender: FDA-Public Use
  Company Number: GB-PFIZER INC-2010086877

PATIENT

DRUGS (1)
  1. SUNITINIB MALATE [Suspect]

REACTIONS (1)
  - PANCREATIC ATROPHY [None]
